FAERS Safety Report 7406849-5 (Version None)
Quarter: 2011Q2

REPORT INFORMATION
  Report Type: 
  Country: None (occurrence: None)
  Receive Date: 20110404
  Receipt Date: 20110311
  Transmission Date: 20111010
  Serious: Yes (Hospitalization, Other)
  Sender: FDA-Public Use
  Company Number: OTC-2011-00004

PATIENT
  Age: 78 Year
  Sex: Female
  Weight: 61.2356 kg

DRUGS (1)
  1. REMBRANDT WHITENING TOOTHPASTE [Suspect]
     Indication: DENTAL DISORDER PROPHYLAXIS
     Dosage: 2X DAILY, TOPICAL
     Route: 061
     Dates: start: 20101203, end: 20110304

REACTIONS (2)
  - ATRIAL FIBRILLATION [None]
  - PAIN IN JAW [None]
